FAERS Safety Report 25411804 (Version 1)
Quarter: 2025Q2

REPORT INFORMATION
  Report Type: Spontaneous
  Country: US (occurrence: US)
  Receive Date: 20250609
  Receipt Date: 20250609
  Transmission Date: 20250716
  Serious: Yes (Other)
  Sender: LP PHARMACEUTICALS INC
  Company Number: US-LP Pharmaceuticals Inc -2178327

PATIENT
  Age: 10 Year
  Sex: Male

DRUGS (2)
  1. CLONIDINE HYDROCHLORIDE [Suspect]
     Active Substance: CLONIDINE HYDROCHLORIDE
     Indication: Somatotropin stimulation test
  2. ARGININE [Suspect]
     Active Substance: ARGININE

REACTIONS (8)
  - Urinary bladder haemorrhage [Recovered/Resolved]
  - Off label use [Unknown]
  - Dysuria [Unknown]
  - Oliguria [Unknown]
  - Pollakiuria [Unknown]
  - Abdominal pain [Unknown]
  - Hypotension [Recovered/Resolved]
  - Haematuria [Recovered/Resolved]
